FAERS Safety Report 9914276 (Version 1)
Quarter: 2014Q1

REPORT INFORMATION
  Report Type: Spontaneous
  Country: US (occurrence: None)
  Receive Date: 20140219
  Receipt Date: 20140219
  Transmission Date: 20141002
  Serious: Yes (Life-Threatening, Hospitalization)
  Sender: FDA-Public Use
  Company Number: None

PATIENT
  Age: 42 Year
  Sex: Male
  Weight: 112.49 kg

DRUGS (2)
  1. ANDROGEL [Suspect]
     Indication: BLOOD TESTOSTERONE DECREASED
     Dosage: 2 PUMPS PER ARM; ONCE DAILY; APPLIED TO A SURFACE, USUALLY THE SKIN
  2. FORTESTA [Suspect]
     Indication: BLOOD TESTOSTERONE DECREASED
     Dosage: 2 PUMPS PER INNER THIGH; ONCE DAILY; APPLIED TO A SURFACE, USUALLY THE SKIN
     Dates: start: 20121110, end: 20130715

REACTIONS (1)
  - Pulmonary embolism [None]
